FAERS Safety Report 6902644-1 (Version None)
Quarter: 2010Q3

REPORT INFORMATION
  Report Type: 
  Country: None (occurrence: None)
  Receive Date: 20100803
  Receipt Date: 20080828
  Transmission Date: 20110219
  Serious: No
  Sender: FDA-Public Use
  Company Number: US-PFIZER INC-2008072941

PATIENT
  Sex: Male
  Weight: 84.09 kg

DRUGS (8)
  1. LYRICA [Suspect]
     Indication: SURGERY
     Route: 048
     Dates: start: 20080821
  2. LYRICA [Suspect]
     Indication: NEURALGIA
  3. LIPITOR [Concomitant]
  4. TRICOR [Concomitant]
  5. TAMSULOSIN HCL [Concomitant]
  6. METFORMIN HCL [Concomitant]
  7. CELEBREX [Concomitant]
  8. OXYCODONE [Concomitant]

REACTIONS (1)
  - DYSURIA [None]
